FAERS Safety Report 9476666 (Version 1)
Quarter: 2013Q3

REPORT INFORMATION
  Report Type: Spontaneous
  Country: IN (occurrence: IN)
  Receive Date: 20130826
  Receipt Date: 20130826
  Transmission Date: 20140515
  Serious: Yes (Other)
  Sender: FDA-Public Use
  Company Number: PHHY2013IN090591

PATIENT
  Sex: Female

DRUGS (3)
  1. DIGOXIN [Suspect]
     Dosage: MATERNAL DOSE: 0.25 MG DAILY
     Route: 064
  2. ACETYLSALICYLIC ACID SANDOZ [Suspect]
     Dosage: MATERNAL DOSE: 100 MG DAILY
     Route: 064
  3. SILDENAFIL [Suspect]
     Dosage: MATERNAL DOSE: 50 MG DAILY
     Route: 064

REACTIONS (2)
  - Premature baby [Unknown]
  - Foetal exposure during pregnancy [Unknown]
